FAERS Safety Report 8041807 (Version 5)
Quarter: 2013Q2

REPORT INFORMATION
  Report Type: Report from Study
  Country: US (occurrence: US)
  Receive Date: 20110718
  Receipt Date: 20130509
  Transmission Date: 20140414
  Serious: Yes (Hospitalization)
  Sender: FDA-Public Use
  Company Number: US-GENZYME-CAMP-1001741

PATIENT
  Age: 31 Year
  Sex: Female
  Weight: 66.21 kg

DRUGS (21)
  1. ALEMTUZUMAB [Suspect]
     Indication: MULTIPLE SCLEROSIS
     Dosage: 12 MG, QDX3
     Route: 042
     Dates: start: 20100104, end: 20100106
  2. ALEMTUZUMAB [Suspect]
     Dosage: 12 MG, QDX3
     Route: 042
     Dates: start: 20110620, end: 20110622
  3. ALEMTUZUMAB [Suspect]
     Dosage: DOSE BLINDED
     Route: 065
     Dates: start: 20090105, end: 20090109
  4. FLOMAX [Concomitant]
     Indication: NEUROGENIC BLADDER
     Dosage: 0.4 MG, QD
     Route: 048
     Dates: start: 200804
  5. DOXAZOSIN [Suspect]
     Indication: NEUROGENIC BLADDER
     Dosage: 2.0 MG, BID
     Route: 048
     Dates: start: 200801, end: 20110708
  6. DICYCLOMINE [Concomitant]
     Indication: IRRITABLE BOWEL SYNDROME
     Dosage: 10 MG, PRN
     Route: 048
     Dates: start: 200601
  7. AMRIX [Concomitant]
     Indication: MUSCLE SPASMS
     Dosage: 15 MG, QD
     Route: 048
     Dates: start: 20090501
  8. PROVIGIL [Concomitant]
     Indication: FATIGUE
     Dosage: 200 MG, QD
     Route: 048
     Dates: start: 20090205
  9. BENADRYL [Concomitant]
     Indication: INFUSION RELATED REACTION
     Dosage: 50 MG, PRN
     Route: 048
     Dates: start: 20100104
  10. CYMBALTA [Concomitant]
     Indication: PAIN
     Dosage: 60 MG, QD
     Route: 048
     Dates: start: 20100727, end: 20110708
  11. YASMIN [Concomitant]
     Indication: CONTRACEPTION
     Dosage: 1 TAB, QD
     Route: 048
     Dates: start: 2003
  12. PEPPERMINT OIL [Concomitant]
     Indication: IRRITABLE BOWEL SYNDROME
     Dosage: 50 MG, PRN
     Route: 048
     Dates: start: 2000
  13. CRANBERRY [Concomitant]
     Indication: NEUROGENIC BLADDER
     Dosage: 1 TAB, QD
     Route: 048
     Dates: start: 200801
  14. TYLENOL [Concomitant]
     Indication: PAIN IN EXTREMITY
     Dosage: 1000 MG, Q4HR
     Route: 065
     Dates: start: 20090105
  15. TYLENOL [Concomitant]
     Indication: HEADACHE
  16. TYLENOL [Concomitant]
     Indication: PROPHYLAXIS
  17. VICODIN [Concomitant]
     Indication: MIGRAINE
     Dosage: 1 TAB, Q4H, PRN
     Route: 048
     Dates: start: 20100104
  18. VITAMIN D3 [Concomitant]
     Indication: SUPPLEMENTATION THERAPY
     Dosage: 5000 MG, QD
     Route: 048
     Dates: start: 20110405
  19. ACYCLOVIR [Concomitant]
     Indication: PROPHYLAXIS
     Dosage: 200 MG, BID
     Route: 048
     Dates: start: 20110618, end: 20110720
  20. ACYCLOVIR [Concomitant]
     Indication: INFECTION
  21. CORGARD [Concomitant]
     Indication: ESSENTIAL TREMOR
     Dosage: 40 MG, QD
     Route: 048
     Dates: start: 20100409, end: 20111018

REACTIONS (1)
  - Syncope [Recovered/Resolved]
